FAERS Safety Report 14206751 (Version 3)
Quarter: 2018Q1

REPORT INFORMATION
  Report Type: Report from Study
  Country: BR (occurrence: BR)
  Receive Date: 20171121
  Receipt Date: 20180121
  Transmission Date: 20180508
  Serious: Yes (Hospitalization)
  Sender: FDA-Public Use
  Company Number: BR-UCBSA-2017046013

PATIENT
  Age: 63 Year
  Sex: Female
  Weight: 71 kg

DRUGS (11)
  1. METHOTREXATE. [Concomitant]
     Active Substance: METHOTREXATE
     Indication: RHEUMATOID ARTHRITIS
     Dosage: 6 DF, WEEKLY (QW)
     Route: 048
     Dates: start: 2014
  2. DIENOGEST [Concomitant]
     Active Substance: DIENOGEST
     Indication: CERVIX DISORDER
     Dosage: 1 DF, ONCE DAILY (QD)
     Dates: start: 20171019
  3. CERTOLIZUMAB PEGOL [Suspect]
     Active Substance: CERTOLIZUMAB PEGOL
     Dosage: 200 MG, EV 2 WEEKS(QOW)
     Dates: end: 2017
  4. CARBOLITIUM [Concomitant]
     Active Substance: LITHIUM CARBONATE
     Indication: AFFECTIVE DISORDER
     Dosage: 900 MG, ONCE DAILY (QD)
     Route: 048
     Dates: start: 2016
  5. QUETIAPINE. [Concomitant]
     Active Substance: QUETIAPINE
     Indication: SLEEP DISORDER
     Dosage: 25 MG, ONCE DAILY (QD)
     Route: 048
     Dates: start: 2016
  6. CERTOLIZUMAB PEGOL [Suspect]
     Active Substance: CERTOLIZUMAB PEGOL
     Indication: RHEUMATOID ARTHRITIS
     Dosage: 400 MG, EV 15 DAYS
     Dates: start: 201605
  7. BUPROPION. [Concomitant]
     Active Substance: BUPROPION
     Indication: DEPRESSION
     Dosage: 300 MG, ONCE DAILY (QD)
     Route: 048
     Dates: start: 2016
  8. TRAMAL [Concomitant]
     Active Substance: TRAMADOL
     Indication: RHEUMATIC DISORDER
     Dosage: 100 MG, AS NEEDED (PRN)
     Route: 048
  9. CARBOLITIUM [Concomitant]
     Active Substance: LITHIUM CARBONATE
     Indication: IRRITABILITY
  10. ALPRAZOLAM. [Concomitant]
     Active Substance: ALPRAZOLAM
     Indication: SEDATION
     Dosage: 2 MG, ONCE DAILY (QD)
     Route: 048
     Dates: start: 2016
  11. DIPROSPAN [Concomitant]
     Active Substance: BETAMETHASONE DIPROPIONATE\BETAMETHASONE SODIUM PHOSPHATE
     Indication: RHEUMATIC DISORDER
     Dosage: UNK
     Dates: start: 20171109, end: 20171109

REACTIONS (5)
  - Endometriosis [Not Recovered/Not Resolved]
  - Injection site pain [Recovering/Resolving]
  - Pain [Recovered/Resolved]
  - Fibrosis [Not Recovered/Not Resolved]
  - Rheumatoid arthritis [Recovered/Resolved]

NARRATIVE: CASE EVENT DATE: 201710
